FAERS Safety Report 7961664-9 (Version None)
Quarter: 2011Q4

REPORT INFORMATION
  Report Type: 
  Country: None (occurrence: None)
  Receive Date: 20111207
  Receipt Date: 20111202
  Transmission Date: 20120403
  Serious: Yes (Other)
  Sender: FDA-Public Use
  Company Number: JP-PFIZER INC-2011295227

PATIENT
  Age: 64 Year
  Sex: Female

DRUGS (4)
  1. CLINDAMYCIN HCL [Suspect]
     Dosage: 300 MG, 3X/DAY
     Dates: start: 20111102
  2. RISPERIDONE [Concomitant]
  3. LEVOFLOXACIN [Concomitant]
  4. SULFAMETHOXAZOLE + TRIMETHOPRIM [Concomitant]

REACTIONS (1)
  - PANCYTOPENIA [None]
